FAERS Safety Report 6185560-5 (Version None)
Quarter: 2009Q2

REPORT INFORMATION
  Report Type: 
  Country: None (occurrence: None)
  Receive Date: 20090511
  Receipt Date: 20090430
  Transmission Date: 20091009
  Serious: Yes (Other)
  Sender: FDA-Public Use
  Company Number: GB-TEVA-190475USA

PATIENT
  Sex: Female

DRUGS (1)
  1. PLAN B TABLET, LEVONORGESTREL, 0.75MG [Suspect]
     Route: 048

REACTIONS (3)
  - DRUG EXPOSURE DURING PREGNANCY [None]
  - METRORRHAGIA [None]
  - PREGNANCY AFTER POST COITAL CONTRACEPTION [None]
